FAERS Safety Report 6899235-8 (Version None)
Quarter: 2010Q3

REPORT INFORMATION
  Report Type: 
  Country: None (occurrence: None)
  Receive Date: 20100802
  Receipt Date: 20080214
  Transmission Date: 20110219
  Serious: No
  Sender: FDA-Public Use
  Company Number: US-PFIZER INC-2007103552

PATIENT
  Sex: Female
  Weight: 68.49 kg

DRUGS (2)
  1. LYRICA [Suspect]
     Indication: POST CONCUSSION SYNDROME
     Route: 048
     Dates: start: 20070718
  2. HYDROCHLOROTHIAZIDE [Concomitant]
     Indication: HYPERTENSION
     Route: 048

REACTIONS (5)
  - ABDOMINAL DISCOMFORT [None]
  - COMPULSIONS [None]
  - DISTURBANCE IN ATTENTION [None]
  - FATIGUE [None]
  - FLATULENCE [None]
